FAERS Safety Report 7299641-6 (Version None)
Quarter: 2011Q1

REPORT INFORMATION
  Report Type: 
  Country: None (occurrence: None)
  Receive Date: 20110209
  Receipt Date: 20110125
  Transmission Date: 20110831
  Serious: Yes (Hospitalization)
  Sender: FDA-Public Use
  Company Number: 1000014454

PATIENT
  Age: 84 Year
  Sex: Male

DRUGS (11)
  1. RISPERDAL [Suspect]
     Indication: ANXIETY
     Dosage: 1 MG (1 MG, 1 IN 1 D),ORAL
     Route: 048
     Dates: start: 20100115
  2. OXAZEPAM [Suspect]
     Indication: ANXIETY
     Dosage: 20 MG (10 MG, 2 IN 1 D), ORAL; 50 MG (50 MG, 1 IN 1 D), ORAL
     Route: 048
     Dates: start: 20100115
  3. OXAZEPAM [Suspect]
     Indication: ANXIETY
     Dosage: 20 MG (10 MG, 2 IN 1 D), ORAL; 50 MG (50 MG, 1 IN 1 D), ORAL
     Route: 048
     Dates: end: 20100114
  4. OMEXEL (TAMSULOSIN HYDROCHLORIDE) (TABLETS) (TAMSULOSIN HYDROCHLORIDE) [Concomitant]
  5. IMOVANE (ZOPICLONE) (TABLETS) [Suspect]
     Indication: INSOMNIA
     Dosage: ORAL
     Route: 048
  6. TANAKAN (GINKO BILOBA EXTRACT) (SOLUTION) (GINKO BILOBA EXTRACT) [Concomitant]
  7. IMOVANE (ZOPICLONE) (TABLETS) [Suspect]
     Indication: INSOMNIA
     Dosage: 7.5 MG (7.5 MG, 1 IN 1 D),ORAL
     Route: 048
  8. MEMANTINE [Suspect]
     Indication: DEMENTIA ALZHEIMER'S TYPE
     Dosage: ORAL
     Route: 048
  9. RISPERDAL [Suspect]
     Indication: ANXIETY
     Dosage: 1.5  MG (1.5  MG, 1 IN 1 D),ORAL
     Route: 048
     Dates: end: 20100114
  10. DAFALGAN (PARACETAMOL) (CAPSULES) (PARACETAMOL) [Concomitant]
  11. MEMANTINE [Suspect]
     Indication: DEMENTIA ALZHEIMER'S TYPE
     Dosage: 20 MG (10 MG, 2 IN 1 D),ORAL
     Route: 048

REACTIONS (11)
  - APHASIA [None]
  - FALL [None]
  - ASTHENIA [None]
  - APATHY [None]
  - ALTERED STATE OF CONSCIOUSNESS [None]
  - ABNORMAL BEHAVIOUR [None]
  - DISORIENTATION [None]
  - ECCHYMOSIS [None]
  - AGITATION [None]
  - EXCORIATION [None]
  - DELUSION [None]
